FAERS Safety Report 6905687-7 (Version None)
Quarter: 2010Q3

REPORT INFORMATION
  Report Type: 
  Country: None (occurrence: None)
  Receive Date: 20100804
  Receipt Date: 20100721
  Transmission Date: 20110219
  Serious: Yes (Death)
  Sender: FDA-Public Use
  Company Number: AU-MYLANLABS-2010S1013035

PATIENT
  Age: 42 Year
  Sex: Female

DRUGS (5)
  1. FLUOXETINE [Suspect]
     Route: 065
  2. MIRTAZAPINE [Suspect]
     Route: 065
  3. VALPROIC ACID [Suspect]
     Route: 065
  4. MORPHINE [Suspect]
     Route: 065
  5. CODEINE [Suspect]
     Route: 065

REACTIONS (1)
  - SEROTONIN SYNDROME [None]
